FAERS Safety Report 25753466 (Version 1)
Quarter: 2025Q3

REPORT INFORMATION
  Report Type: Spontaneous
  Country: JP (occurrence: JP)
  Receive Date: 20250903
  Receipt Date: 20250903
  Transmission Date: 20251021
  Serious: Yes (Hospitalization)
  Sender: TEVA
  Company Number: JP-MMM-Otsuka-8B96VNWO

PATIENT
  Age: 29 Year
  Sex: Female

DRUGS (1)
  1. AJOVY [Suspect]
     Active Substance: FREMANEZUMAB-VFRM
     Indication: Product used for unknown indication
     Dosage: ONCE EVERY FOUR WEEKS
     Route: 065

REACTIONS (2)
  - Fracture [Unknown]
  - Fall [Unknown]
